FAERS Safety Report 6421619-2 (Version None)
Quarter: 2009Q4

REPORT INFORMATION
  Report Type: 
  Country: None (occurrence: None)
  Receive Date: 20091030
  Receipt Date: 20091029
  Transmission Date: 20100525
  Serious: Yes (Other)
  Sender: FDA-Public Use
  Company Number: US-MYLANLABS-2009S1016613

PATIENT
  Age: 60 Year
  Sex: Female
  Weight: 81.19 kg

DRUGS (3)
  1. PHENYTOIN SODIUM [Suspect]
     Indication: CONVULSION
     Route: 048
     Dates: start: 20030101, end: 20030101
  2. PHENYTOIN SODIUM [Suspect]
     Route: 048
     Dates: start: 20090101
  3. PREMARIN [Concomitant]
     Route: 048
     Dates: start: 20030101

REACTIONS (3)
  - CONVULSION [None]
  - DRUG INEFFECTIVE [None]
  - DRUG LEVEL FLUCTUATING [None]
